FAERS Safety Report 23540720 (Version 1)
Quarter: 2024Q1

REPORT INFORMATION
  Report Type: Spontaneous
  Country: CA (occurrence: CA)
  Receive Date: 20240219
  Receipt Date: 20240219
  Transmission Date: 20240409
  Serious: Yes (Other)
  Sender: FDA-Public Use
  Company Number: CA-FreseniusKabi-FK202402515

PATIENT
  Age: 5 Year
  Sex: Male

DRUGS (3)
  1. SMOFLIPID [Suspect]
     Active Substance: FISH OIL\MEDIUM-CHAIN TRIGLYCERIDES\OLIVE OIL\SOYBEAN OIL
     Indication: Product used for unknown indication
     Dosage: DOSAGE FORM: EMULSION
     Route: 041
  2. PEDIASURE PLUS [Concomitant]
     Indication: Product used for unknown indication
  3. parenteral nutrition (TPN) [Concomitant]
     Indication: Product used for unknown indication

REACTIONS (9)
  - Cough [Unknown]
  - Flushing [Unknown]
  - Heart rate increased [Unknown]
  - Lip swelling [Unknown]
  - Oxygen saturation decreased [Unknown]
  - Tachypnoea [Unknown]
  - Urticaria [Unknown]
  - Vomiting [Unknown]
  - Wheezing [Unknown]
